FAERS Safety Report 4403871-8 (Version None)
Quarter: 2004Q3

REPORT INFORMATION
  Report Type: 
  Country: None (occurrence: None)
  Receive Date: 20040719
  Receipt Date: 20040705
  Transmission Date: 20050211
  Serious: Yes (Hospitalization)
  Sender: FDA-Public Use
  Company Number: 04P-056-0258114-00

PATIENT
  Age: 64 Year
  Sex: Male

DRUGS (7)
  1. MICROPAKINE GRANULE (DEPAKENE) (VALPROIC ACID) (VALPROIC ACID) [Suspect]
     Dosage: 1250 MG, 1 IN 1 D, PER ORAL; SEE IMAGE
     Route: 048
     Dates: start: 20040108, end: 20040401
  2. MICROPAKINE GRANULE (DEPAKENE) (VALPROIC ACID) (VALPROIC ACID) [Suspect]
     Dosage: 1250 MG, 1 IN 1 D, PER ORAL; SEE IMAGE
     Route: 048
     Dates: start: 20040401
  3. GARDENAL (PHENOBARBITAL) [Concomitant]
  4. GAVISCON [Concomitant]
  5. LACTULOSE [Concomitant]
  6. ASASANTIN [Concomitant]
  7. ERGENYL CHRONO [Concomitant]

REACTIONS (4)
  - DRUG INEFFECTIVE [None]
  - EPILEPSY [None]
  - HYPOTONIA [None]
  - MALAISE [None]
